FAERS Safety Report 9508545 (Version 1)
Quarter: 2013Q3

REPORT INFORMATION
  Report Type: Report from Study
  Country: NL (occurrence: NL)
  Receive Date: 20130909
  Receipt Date: 20130909
  Transmission Date: 20140515
  Serious: Yes (Death)
  Sender: FDA-Public Use
  Company Number: NL-B.I. PHARMACEUTICALS,INC./RIDGEFIELD-2013-NL-00567NL

PATIENT
  Age: 71 Year
  Sex: Male
  Weight: 80 kg

DRUGS (7)
  1. PRADAXA [Suspect]
     Indication: ATRIAL FIBRILLATION
     Dosage: 300 MG
     Dates: start: 20130410
  2. CANDESARTAN [Concomitant]
     Dosage: 4 MG
  3. DILTIAZEM [Concomitant]
     Dosage: 200 MG
  4. FUROSEMIDE [Concomitant]
     Dosage: 40 MG
  5. LERCANIDIPINE [Concomitant]
     Dosage: 10 MG
  6. ESOMEPRAZOL [Concomitant]
     Dosage: 40 MG
  7. FLUVASTATINE [Concomitant]
     Dosage: 80 MG

REACTIONS (2)
  - Haemorrhage [Fatal]
  - Aortic aneurysm rupture [Fatal]
